FAERS Safety Report 18105669 (Version 1)
Quarter: 2020Q3

REPORT INFORMATION
  Report Type: Spontaneous
  Country: US (occurrence: US)
  Receive Date: 20200804
  Receipt Date: 20200804
  Transmission Date: 20201103
  Serious: Yes (Hospitalization)
  Sender: FDA-Public Use
  Company Number: US-MICRO LABS LIMITED-ML2020-02256

PATIENT
  Sex: Male

DRUGS (22)
  1. PREDNISONE. [Suspect]
     Active Substance: PREDNISONE
     Indication: PROCEDURAL PAIN
     Dosage: 60 MG DAILY 3 DAYS
  2. ONDANSETRON [Suspect]
     Active Substance: ONDANSETRON
     Dosage: 4 MG ADMINISTERED AS A COCKTAIL
  3. HYDROCODONE?ACETAMINOPHEN [Suspect]
     Active Substance: ACETAMINOPHEN\HYDROCODONE
     Indication: PROCEDURAL PAIN
     Dosage: 7.5 TO 325 MG TID PRN  MORE THEN 2 YEARS
  4. MAGNESIUM [Suspect]
     Active Substance: MAGNESIUM
     Indication: PROCEDURAL PAIN
     Dosage: 2 G
  5. TRAMADOL. [Suspect]
     Active Substance: TRAMADOL
     Indication: PROCEDURAL PAIN
     Dosage: 50 MG
  6. LEVETIRACETAM. [Suspect]
     Active Substance: LEVETIRACETAM
     Indication: PROCEDURAL PAIN
     Dosage: 500 MG TID 40 DAYS
  7. INDOMETHACIN. [Suspect]
     Active Substance: INDOMETHACIN
     Indication: PROCEDURAL PAIN
     Dosage: 25 MG TID 40 DAYS
  8. ONDANSETRON [Suspect]
     Active Substance: ONDANSETRON
     Indication: PROCEDURAL PAIN
     Dosage: 4 MG
  9. METHYLPREDNISOLONE. [Suspect]
     Active Substance: METHYLPREDNISOLONE
     Indication: PROCEDURAL PAIN
     Dosage: 1 G
  10. DIPHENHYDRAMINE HYDROCHLORIDE. [Suspect]
     Active Substance: DIPHENHYDRAMINE HYDROCHLORIDE
     Indication: PROCEDURAL PAIN
     Dosage: ADMINISTERED AS A COCKTAIL
  11. MORPHINE [Suspect]
     Active Substance: MORPHINE
     Indication: PROCEDURAL PAIN
     Dosage: 4 MG
  12. CYCLOBENZAPRINE. [Suspect]
     Active Substance: CYCLOBENZAPRINE
     Indication: PROCEDURAL PAIN
     Dosage: 10 MG
  13. ACETAMINOPHEN. [Suspect]
     Active Substance: ACETAMINOPHEN
     Indication: PROCEDURAL PAIN
     Dosage: 650 MG (EVERY 6 HOURS) ADMINISTERED AS A COCKTAIL
  14. LIDOCAINE (SUPERFICIAL INJ) [Suspect]
     Active Substance: LIDOCAINE
     Indication: PROCEDURAL PAIN
     Dosage: ONCE 1 DAY
  15. LIDOPROFEN CREAM [Suspect]
     Active Substance: KETAMINE\KETOPROFEN\LIDOCAINE
     Indication: PROCEDURAL PAIN
     Dosage: TOPICAL DAILY PRN
  16. PREGABALIN. [Suspect]
     Active Substance: PREGABALIN
     Indication: PROCEDURAL PAIN
     Dosage: 100 MG DAILY 3 MONTHS
  17. METHOCARBAMOL. [Suspect]
     Active Substance: METHOCARBAMOL
     Indication: PROCEDURAL PAIN
     Dosage: 500 MG TID PRN 1 MONTH
  18. NUBAIN [Suspect]
     Active Substance: NALBUPHINE HYDROCHLORIDE
     Indication: PROCEDURAL PAIN
     Dosage: ONCE 1 DAY
  19. OXCARBAMAZEPINE [Suspect]
     Active Substance: OXCARBAZEPINE
     Indication: PROCEDURAL PAIN
     Dosage: 150 MG BID 2 WEEKS
  20. OXCARBAMAZEPINE [Suspect]
     Active Substance: OXCARBAZEPINE
     Dosage: 300 MG BID 2 WEEKS
  21. CEFALY DEVICE [Suspect]
     Active Substance: DEVICE
     Indication: PROCEDURAL PAIN
     Dosage: ONCE
  22. GABAPENTIN. [Suspect]
     Active Substance: GABAPENTIN
     Indication: PROCEDURAL PAIN
     Dosage: 600 MG TID MORETHEN 1 MONTH

REACTIONS (1)
  - Drug ineffective [Unknown]
